FAERS Safety Report 15945283 (Version 2)
Quarter: 2019Q3

REPORT INFORMATION
  Report Type: Other
  Country: DE (occurrence: DE)
  Receive Date: 20190211
  Receipt Date: 20190807
  Transmission Date: 20191004
  Serious: No
  Sender: FDA-Public Use
  Company Number: DE-LUPIN PHARMACEUTICALS INC.-2018-08948

PATIENT
  Age: 46 Year
  Sex: Male
  Weight: 80 kg

DRUGS (7)
  1. LEVETIRACETAM. [Suspect]
     Active Substance: LEVETIRACETAM
     Dosage: 125 MG, UNK (EVERY WEEK)
     Route: 048
     Dates: start: 20180706
  2. LEVETIRACETAM. [Suspect]
     Active Substance: LEVETIRACETAM
     Indication: PRODUCT USED FOR UNKNOWN INDICATION
     Dosage: UNK
     Route: 048
  3. ASPIRIN. [Concomitant]
     Active Substance: ASPIRIN
     Indication: CEREBROVASCULAR ACCIDENT
     Dosage: 100 MILLIGRAM, QD (1-0-0)
     Route: 048
     Dates: start: 20180512
  4. CLOPIDOGREL                        /01220704/ [Concomitant]
     Active Substance: CLOPIDOGREL BESILATE
     Indication: PRODUCT USED FOR UNKNOWN INDICATION
     Dosage: 75 MILLIGRAM, QD
     Route: 065
  5. LEVETIRACETAM. [Suspect]
     Active Substance: LEVETIRACETAM
     Dosage: UNK (DOSE REDUCTION)
     Route: 048
     Dates: start: 20180620
  6. LEVETIRACETAM. [Suspect]
     Active Substance: LEVETIRACETAM
     Dosage: 20 MG, (EVERY WEEK) DOSE REDUCED
     Route: 048
     Dates: start: 20180819, end: 20181015
  7. ATORVASTATIN [Concomitant]
     Active Substance: ATORVASTATIN
     Indication: CAROTID ARTERY STENOSIS
     Dosage: 80 MILLIGRAM, QD
     Route: 048

REACTIONS (7)
  - Hyperhidrosis [Not Recovered/Not Resolved]
  - Aggression [Not Recovered/Not Resolved]
  - Withdrawal syndrome [Not Recovered/Not Resolved]
  - Oscillopsia [Not Recovered/Not Resolved]
  - Blood pressure increased [Not Recovered/Not Resolved]
  - Agitation [Not Recovered/Not Resolved]
  - Paraesthesia [Not Recovered/Not Resolved]

NARRATIVE: CASE EVENT DATE: 20180620
